FAERS Safety Report 12454658 (Version 1)
Quarter: 2016Q2

REPORT INFORMATION
  Report Type: Spontaneous
  Country: FR (occurrence: FR)
  Receive Date: 20160610
  Receipt Date: 20160610
  Transmission Date: 20160815
  Serious: Yes (Other)
  Sender: FDA-Public Use
  Company Number: FR-CIPLA LTD.-2016FR06407

PATIENT

DRUGS (3)
  1. GEMCITABINE [Suspect]
     Active Substance: GEMCITABINE\GEMCITABINE HYDROCHLORIDE
     Indication: BREAST NEOPLASM
     Dosage: 1250 MG/M2, ON DAYS 1 AND 8 OF 21-DAY CYCLE
     Route: 065
  2. CISPLATIN. [Suspect]
     Active Substance: CISPLATIN
     Indication: BREAST NEOPLASM
     Dosage: 75 MG/M2, ON DAY 1 OF 21-DAY CYCLE
     Route: 065
  3. CEP-9722 [Suspect]
     Active Substance: CEP-9722
     Indication: BREAST NEOPLASM
     Dosage: 300 MG, BID, FROM DAY 2 THROUGH DAY 7 OF 21-DAY CYCLE
     Route: 048

REACTIONS (1)
  - Disease progression [Unknown]
